FAERS Safety Report 4282152-X (Version None)
Quarter: 2004Q1

REPORT INFORMATION
  Report Type: 
  Country: None (occurrence: None)
  Receive Date: 20040123
  Receipt Date: 20030703
  Transmission Date: 20041129
  Serious: Yes (Hospitalization)
  Sender: FDA-Public Use
  Company Number: 2003IM000704

PATIENT
  Age: 70 Year
  Sex: Female
  Weight: 138 kg

DRUGS (1)
  1. AMPHOTEC [Suspect]
     Indication: ASPERGILLOSIS
     Dosage: 4 MG/KG; QD; INTRAVENOUS
     Route: 042

REACTIONS (1)
  - RENAL DISORDER [None]
